FAERS Safety Report 9958894 (Version 1)
Quarter: 2014Q1

REPORT INFORMATION
  Report Type: Spontaneous
  Country: IN (occurrence: None)
  Receive Date: 20140228
  Receipt Date: 20140228
  Transmission Date: 20141002
  Serious: Yes (Hospitalization)
  Sender: FDA-Public Use
  Company Number: 2014P1001614

PATIENT
  Age: 40 Year
  Sex: Female

DRUGS (1)
  1. ISONIAZID [Suspect]
     Indication: PULMONARY TUBERCULOSIS

REACTIONS (10)
  - Encephalitis [None]
  - Dizziness [None]
  - Dysarthria [None]
  - Hepatosplenomegaly [None]
  - Blood urea increased [None]
  - Blood creatinine increased [None]
  - Renal disorder [None]
  - Neurotoxicity [None]
  - Encephalitis viral [None]
  - Renal function test abnormal [None]
